FAERS Safety Report 5449180-X (Version None)
Quarter: 2007Q3

REPORT INFORMATION
  Report Type: 
  Country: None (occurrence: None)
  Receive Date: 20070911
  Receipt Date: 20070905
  Transmission Date: 20080115
  Serious: Yes (Other)
  Sender: FDA-Public Use
  Company Number: HK-BOEHRINGER INGELHEIM PHARMACEUTICALS, INC.-2003-BP-03763BP

PATIENT
  Sex: Male
  Weight: 64 kg

DRUGS (11)
  1. MICARDIS [Suspect]
     Indication: CARDIOVASCULAR DISORDER
     Route: 048
     Dates: start: 20030214
  2. MICARDIS [Suspect]
     Indication: CEREBROVASCULAR ACCIDENT PROPHYLAXIS
  3. RAMIPRIL [Suspect]
     Indication: CARDIOVASCULAR DISORDER
     Route: 048
     Dates: start: 20030214
  4. RAMIPRIL [Suspect]
     Indication: CEREBROVASCULAR ACCIDENT PROPHYLAXIS
  5. METFORMIN HCL [Concomitant]
  6. GLYBURIDE [Concomitant]
  7. DILTIAZEM HCL S.R. [Concomitant]
  8. ISOSORBIDE MONONITRATE C.R. [Concomitant]
  9. TRIMETAZIDINE [Concomitant]
  10. GLYCERYL TRINITRATE [Concomitant]
  11. ASPIRIN [Concomitant]

REACTIONS (1)
  - ORTHOSTATIC HYPOTENSION [None]
